FAERS Safety Report 10269779 (Version 1)
Quarter: 2014Q2

REPORT INFORMATION
  Report Type: Spontaneous
  Country: CA (occurrence: None)
  Receive Date: 20140625
  Receipt Date: 20140625
  Transmission Date: 20141212
  Serious: Yes (Other)
  Sender: FDA-Public Use
  Company Number: ABR_01709_2014

PATIENT
  Sex: Male

DRUGS (2)
  1. RHO-NITRO [Suspect]
     Indication: ANGINA PECTORIS
     Route: 060
     Dates: end: 2014
  2. INJECTION AT REST AND INJECTION WITH EFFORT [Concomitant]

REACTIONS (4)
  - Chest pain [None]
  - Fatigue [None]
  - Insomnia [None]
  - Nocturia [None]
